FAERS Safety Report 7068611-5 (Version None)
Quarter: 2010Q4

REPORT INFORMATION
  Report Type: 
  Country: None (occurrence: None)
  Receive Date: 20101027
  Receipt Date: 20101027
  Transmission Date: 20110411
  Serious: Yes (Life-Threatening, Other)
  Sender: FDA-Public Use
  Company Number: None

PATIENT
  Age: 59 Year
  Sex: Male
  Weight: 78.0187 kg

DRUGS (1)
  1. RELAXZEN [Suspect]
     Indication: INSOMNIA
     Dosage: ENTIRE BOTTLE -I ONLY SIPPED-
     Route: 048
     Dates: start: 20100922, end: 20100922

REACTIONS (3)
  - DIZZINESS [None]
  - DYSPNOEA [None]
  - URTICARIA [None]
